FAERS Safety Report 5266289-4 (Version None)
Quarter: 2007Q1

REPORT INFORMATION
  Report Type: 
  Country: None (occurrence: None)
  Receive Date: 20070315
  Receipt Date: 20070309
  Transmission Date: 20070707
  Serious: Yes (Hospitalization, Congenital Anomaly)
  Sender: FDA-Public Use
  Company Number: FR-AVENTIS-200710868FR

PATIENT
  Age: 33 Year
  Sex: Female

DRUGS (2)
  1. LOVENOX [Suspect]
     Route: 058
  2. ASPEGIC 1000 [Suspect]
     Route: 048

REACTIONS (3)
  - ABORTION INDUCED [None]
  - CONGENITAL HYDROCEPHALUS [None]
  - DRUG EXPOSURE DURING PREGNANCY [None]
